FAERS Safety Report 8109127-4 (Version None)
Quarter: 2012Q1

REPORT INFORMATION
  Report Type: 
  Country: None (occurrence: None)
  Receive Date: 20120202
  Receipt Date: 20120105
  Transmission Date: 20120608
  Serious: No
  Sender: FDA-Public Use
  Company Number: US-AMGEN-USASP2012000582

PATIENT
  Age: 71 Year
  Sex: Female

DRUGS (3)
  1. ENBREL [Suspect]
     Indication: RHEUMATOID ARTHRITIS
     Dosage: 50 MG, UNK
     Route: 058
     Dates: start: 20070228, end: 20111101
  2. AZULFIDINE [Concomitant]
     Dosage: 3 MG, QD
     Dates: start: 20110101
  3. TREXALL [Concomitant]
     Dosage: 1 MG, QWK
     Dates: start: 20111201

REACTIONS (4)
  - NODULE [None]
  - RHEUMATOID ARTHRITIS [None]
  - HYPOAESTHESIA [None]
  - INJECTION SITE PAIN [None]
